FAERS Safety Report 4363934-2 (Version None)
Quarter: 2004Q2

REPORT INFORMATION
  Report Type: 
  Country: None (occurrence: None)
  Receive Date: 20040525
  Receipt Date: 20020827
  Transmission Date: 20050107
  Serious: Yes (Hospitalization)
  Sender: FDA-Public Use
  Company Number: PHHO2002IT06377

PATIENT
  Age: 68 Year
  Sex: Female
  Weight: 86 kg

DRUGS (4)
  1. TAMOXIFEN CITRATE [Suspect]
     Indication: BREAST CANCER
     Route: 048
     Dates: start: 20020304, end: 20020826
  2. VASERETIC [Concomitant]
     Indication: HYPERTENSION
  3. PRAVASELECT [Concomitant]
     Indication: HYPERCHOLESTEROLAEMIA
  4. RYTMONORM [Concomitant]
     Indication: CARDIOVASCULAR DISORDER

REACTIONS (4)
  - APHASIA [None]
  - CAROTID ARTERY STENOSIS [None]
  - CEREBRAL ISCHAEMIA [None]
  - CEREBROVASCULAR ACCIDENT [None]
